FAERS Safety Report 9248409 (Version 1)
Quarter: 2013Q1

REPORT INFORMATION
  Report Type: Spontaneous
  Country: US (occurrence: None)
  Receive Date: 20121113
  Receipt Date: 20121113
  Transmission Date: 20140127
  Serious: Yes (Other)
  Sender: FDA-Public Use
  Company Number: PHEH2012US005441

PATIENT
  Age: 9 Year
  Sex: Male

DRUGS (1)
  1. TRILEPTAL (OXCARBAZEPINE) [Suspect]
     Dates: start: 20110831

REACTIONS (4)
  - Convulsion [None]
  - Hypersensitivity [None]
  - Abdominal pain upper [None]
  - Urticaria [None]
